FAERS Safety Report 25417242 (Version 1)
Quarter: 2025Q2

REPORT INFORMATION
  Report Type: Spontaneous
  Country: GB (occurrence: GB)
  Receive Date: 20250610
  Receipt Date: 20250610
  Transmission Date: 20250717
  Serious: Yes (Other)
  Sender: BAXTER
  Company Number: GB-BAXTER-2025BAX016421

PATIENT
  Sex: Female

DRUGS (4)
  1. SODIUM CHLORIDE [Suspect]
     Active Substance: SODIUM CHLORIDE
     Dosage: UNK, EVERY 8 WK, INFUSED OVER 1HR
     Route: 042
  2. WATER FOR INJECTION [Suspect]
     Active Substance: WATER
     Dosage: UNK, EVERY 8 WK, INFUSED OVER 1HR
     Route: 042
  3. INFLIXIMAB [Suspect]
     Active Substance: INFLIXIMAB
     Indication: Crohn^s disease
     Dosage: 300 MG, EVERY 8 WK, INFUSED OVER 1HR
     Route: 042
  4. SODIUM CHLORIDE [Suspect]
     Active Substance: SODIUM CHLORIDE
     Indication: Catheter management
     Route: 065

REACTIONS (3)
  - Lower respiratory tract infection [Unknown]
  - Chest pain [Unknown]
  - Chest discomfort [Unknown]
